FAERS Safety Report 7546519-6 (Version None)
Quarter: 2011Q2

REPORT INFORMATION
  Report Type: 
  Country: None (occurrence: None)
  Receive Date: 20110607
  Receipt Date: 20110523
  Transmission Date: 20111010
  Serious: Yes (Hospitalization, Other)
  Sender: FDA-Public Use
  Company Number: 2011MA006238

PATIENT
  Age: 52 Year
  Sex: Male

DRUGS (1)
  1. HALOPERIDOL LACTATE [Suspect]
     Indication: SCHIZOPHRENIA
     Dosage: 5 MG, TID, PO
     Route: 048

REACTIONS (3)
  - TORSADE DE POINTES [None]
  - SYNCOPE [None]
  - BLOOD POTASSIUM DECREASED [None]
